FAERS Safety Report 15766131 (Version 1)
Quarter: 2018Q4

REPORT INFORMATION
  Report Type: Spontaneous
  Country: CN (occurrence: CN)
  Receive Date: 20181227
  Receipt Date: 20181227
  Transmission Date: 20190205
  Serious: Yes (Other)
  Sender: FDA-Public Use
  Company Number: CN-BAYER-2018-243148

PATIENT
  Sex: Female

DRUGS (4)
  1. YASMIN [Suspect]
     Active Substance: DROSPIRENONE\ETHINYL ESTRADIOL
     Indication: CONTRACEPTION
     Dates: end: 2017
  2. YASMIN [Suspect]
     Active Substance: DROSPIRENONE\ETHINYL ESTRADIOL
     Indication: CONTRACEPTION
     Dates: start: 2017, end: 2018
  3. DESOGESTREL 0.15MG + ETHINYLESTRADIOL 0.03MG [Suspect]
     Active Substance: DESOGESTREL\ETHINYL ESTRADIOL
     Indication: ACNE
     Dosage: UNK
  4. DESOGESTREL 0.15MG + ETHINYLESTRADIOL 0.03MG [Suspect]
     Active Substance: DESOGESTREL\ETHINYL ESTRADIOL
     Indication: CONTRACEPTION

REACTIONS (9)
  - Photophobia [Unknown]
  - Alopecia [Unknown]
  - Hormone level abnormal [Unknown]
  - Drug ineffective for unapproved indication [Unknown]
  - Blindness [Unknown]
  - Product use in unapproved indication [Unknown]
  - Menopausal symptoms [Unknown]
  - Reduced facial expression [Unknown]
  - Seborrhoea [Unknown]

NARRATIVE: CASE EVENT DATE: 2017
